FAERS Safety Report 8190513-1 (Version None)
Quarter: 2012Q1

REPORT INFORMATION
  Report Type: 
  Country: None (occurrence: None)
  Receive Date: 20120307
  Receipt Date: 20120301
  Transmission Date: 20120608
  Serious: Yes (Life-Threatening)
  Sender: FDA-Public Use
  Company Number: FR-SANOFI-AVENTIS-2012SA013864

PATIENT
  Age: 73 Year
  Sex: Female

DRUGS (2)
  1. ELOXATIN [Suspect]
     Route: 042
     Dates: start: 20120113, end: 20120113
  2. ELOXATIN [Suspect]
     Route: 042

REACTIONS (1)
  - COMA [None]
